FAERS Safety Report 9499844 (Version 1)
Quarter: 2013Q1

REPORT INFORMATION
  Report Type: Spontaneous
  Country: US (occurrence: None)
  Receive Date: 20130107
  Receipt Date: 20130107
  Transmission Date: 20140127
  Serious: No
  Sender: FDA-Public Use
  Company Number: PHEH2012US022978

PATIENT
  Sex: Female
  Weight: 77.1 kg

DRUGS (7)
  1. GILENYA [Suspect]
     Route: 048
  2. ZYRTEC (CETIRIZINE HYDROCHLORIDE) [Concomitant]
  3. TRICOR (FENOFIBRATE) [Concomitant]
  4. MULTI-VIT (VITAMINS NOS) [Concomitant]
  5. FISH OIL (FISH OIL) [Concomitant]
  6. VITAMIN D (ERGOCALCIFEROL) [Concomitant]
  7. CALCIUM [Concomitant]

REACTIONS (3)
  - Muscle spasms [None]
  - Hypoaesthesia [None]
  - Paraesthesia [None]
